FAERS Safety Report 6029535-5 (Version None)
Quarter: 2009Q1

REPORT INFORMATION
  Report Type: 
  Country: None (occurrence: None)
  Receive Date: 20090107
  Receipt Date: 20090105
  Transmission Date: 20090719
  Serious: Yes (Other)
  Sender: FDA-Public Use
  Company Number: US-JNJFOC-20090100591

PATIENT
  Age: 6 Year
  Sex: Female
  Weight: 24.49 kg

DRUGS (1)
  1. CONCERTA [Suspect]
     Indication: ATTENTION DEFICIT/HYPERACTIVITY DISORDER
     Dosage: SINCE 7 YEARS
     Route: 048

REACTIONS (1)
  - WEIGHT GAIN POOR [None]
